FAERS Safety Report 6188523-9 (Version None)
Quarter: 2009Q2

REPORT INFORMATION
  Report Type: 
  Country: None (occurrence: None)
  Receive Date: 20090513
  Receipt Date: 20090506
  Transmission Date: 20091009
  Serious: Yes (Hospitalization)
  Sender: FDA-Public Use
  Company Number: US-PFIZER INC-2008090427

PATIENT
  Sex: Female
  Weight: 76.2 kg

DRUGS (9)
  1. CELECOXIB [Suspect]
     Indication: OSTEOARTHRITIS
     Route: 048
     Dates: start: 20080414
  2. KLONOPIN [Concomitant]
     Route: 048
     Dates: start: 20050101
  3. AZMACORT [Concomitant]
     Route: 048
     Dates: start: 20070101
  4. XOPENEX [Concomitant]
     Route: 048
     Dates: start: 20060824
  5. LIPITOR [Concomitant]
     Route: 048
     Dates: start: 20020101
  6. TRAZODONE HCL [Concomitant]
     Route: 048
     Dates: start: 20070323
  7. ZOLOFT [Concomitant]
     Route: 048
     Dates: start: 19940101
  8. TRICOR [Concomitant]
     Route: 048
     Dates: start: 20040101
  9. ACTOS [Concomitant]
     Route: 048
     Dates: start: 20050101

REACTIONS (2)
  - CHEST PAIN [None]
  - CORONARY ARTERY DISEASE [None]
